FAERS Safety Report 5179658-8 (Version None)
Quarter: 2006Q4

REPORT INFORMATION
  Report Type: 
  Country: None (occurrence: None)
  Receive Date: 20061211
  Receipt Date: 20061201
  Transmission Date: 20070319
  Serious: Yes (Hospitalization, Other)
  Sender: FDA-Public Use
  Company Number: 163-21880-06090751

PATIENT
  Age: 78 Year
  Sex: Female

DRUGS (15)
  1. REVLIMID [Suspect]
     Indication: MYELODYSPLASTIC SYNDROME
     Dosage: 5 MG, DAILY, ORAL
     Route: 048
     Dates: start: 20060401, end: 20060910
  2. REVLIMID [Suspect]
     Indication: MYELODYSPLASTIC SYNDROME
     Dosage: 5 MG, DAILY, ORAL
     Route: 048
     Dates: start: 20060918
  3. REVLIMID [Suspect]
  4. AGGRENOX [Concomitant]
  5. NEUPOGEN [Concomitant]
  6. ARANESP [Concomitant]
  7. LANTUS [Concomitant]
  8. LEXAPRO [Concomitant]
  9. COUMADIN [Concomitant]
  10. PROTONIX [Concomitant]
  11. HYDRALAZINE HCL [Concomitant]
  12. CARDIZEM [Concomitant]
  13. TETRACYCLINE [Concomitant]
  14. ATIVAN [Concomitant]
  15. ATARAX [Concomitant]

REACTIONS (6)
  - ABDOMINAL PAIN [None]
  - CHOLECYSTITIS ACUTE [None]
  - CHOLELITHIASIS [None]
  - COLON CANCER [None]
  - LARGE INTESTINE PERFORATION [None]
  - LEUKOPENIA [None]
